APPROVED DRUG PRODUCT: IBUPROFEN
Active Ingredient: IBUPROFEN
Strength: 50MG/1.25ML
Dosage Form/Route: SUSPENSION/DROPS;ORAL
Application: A214071 | Product #001
Applicant: STRIDES PHARMA GLOBAL PTE LTD
Approved: Jun 9, 2022 | RLD: No | RS: No | Type: DISCN